FAERS Safety Report 9415478 (Version 1)
Quarter: 2013Q3

REPORT INFORMATION
  Report Type: Spontaneous
  Country: GB (occurrence: GB)
  Receive Date: 20130723
  Receipt Date: 20130723
  Transmission Date: 20140515
  Serious: Yes (Disabling, Other)
  Sender: FDA-Public Use
  Company Number: GB-PFIZER INC-2013212665

PATIENT
  Age: 82 Year
  Sex: Female
  Weight: 61.5 kg

DRUGS (8)
  1. GABAPENTIN [Suspect]
     Dosage: UNK
     Dates: start: 20130402
  2. NAPROXEN [Concomitant]
     Dosage: UNK
     Dates: start: 20130306
  3. SOLIFENACIN SUCCINATE [Concomitant]
     Dosage: UNK
     Dates: start: 20130328
  4. OMEPRAZOLE [Concomitant]
     Dosage: UNK
     Dates: start: 20130412
  5. ALGESAL [Concomitant]
     Dosage: UNK
     Dates: start: 20130510
  6. MOVELAT [Concomitant]
     Dosage: UNK
     Dates: start: 20130510
  7. PREDNISOLONE [Concomitant]
     Dosage: UNK
     Dates: start: 20130610, end: 20130620
  8. GLANDOSANE [Concomitant]
     Dosage: UNK
     Dates: start: 20130612

REACTIONS (10)
  - Renal impairment [Unknown]
  - Headache [Recovered/Resolved]
  - Thirst [Recovered/Resolved]
  - Dry mouth [Recovered/Resolved]
  - Weight decreased [Recovered/Resolved]
  - Dry skin [Recovered/Resolved]
  - Malaise [Recovering/Resolving]
  - C-reactive protein increased [Unknown]
  - Blood viscosity increased [Unknown]
  - Feeling abnormal [Unknown]
